FAERS Safety Report 4941350-X (Version None)
Quarter: 2006Q1

REPORT INFORMATION
  Report Type: 
  Country: None (occurrence: None)
  Receive Date: 20060313
  Receipt Date: 20051115
  Transmission Date: 20060701
  Serious: Yes (Hospitalization, Disabling)
  Sender: FDA-Public Use
  Company Number: US-MERCK-0511USA03056

PATIENT
  Age: 63 Year
  Sex: Male
  Weight: 81 kg

DRUGS (6)
  1. VIOXX [Suspect]
     Indication: INTERVERTEBRAL DISC DEGENERATION
     Route: 048
     Dates: start: 20040117, end: 20040801
  2. TYLENOL (CAPLET) [Concomitant]
     Route: 065
  3. PRILOSEC [Concomitant]
     Indication: GASTRITIS
     Route: 065
  4. VIOXX [Suspect]
     Indication: BACK INJURY
     Route: 048
     Dates: start: 20000717, end: 20040830
  5. VIOXX [Suspect]
     Route: 048
     Dates: start: 20040117, end: 20040801
  6. VIOXX [Suspect]
     Route: 048
     Dates: start: 20000717, end: 20040830

REACTIONS (9)
  - CEREBROVASCULAR ACCIDENT [None]
  - CHEST PAIN [None]
  - DIZZINESS [None]
  - DYSPNOEA [None]
  - HYPERLIPIDAEMIA [None]
  - PATELLOFEMORAL PAIN SYNDROME [None]
  - PIRIFORMIS SYNDROME [None]
  - ROTATOR CUFF SYNDROME [None]
  - SYNCOPE [None]
